FAERS Safety Report 14023299 (Version 3)
Quarter: 2019Q1

REPORT INFORMATION
  Report Type: Spontaneous
  Country: FI (occurrence: FI)
  Receive Date: 20170929
  Receipt Date: 20190118
  Transmission Date: 20190417
  Serious: Yes (Other)
  Sender: FDA-Public Use
  Company Number: FI-MYLANLABS-2017M1059321

PATIENT
  Sex: Female

DRUGS (8)
  1. LEPONEX [Suspect]
     Active Substance: CLOZAPINE
     Dosage: 50 MILLIGRAM, PM
     Dates: start: 2017
  2. LEPONEX [Suspect]
     Active Substance: CLOZAPINE
     Dosage: 200 MILLIGRAM, PM
     Dates: start: 2017
  3. MINIRIN [Suspect]
     Active Substance: DESMOPRESSIN ACETATE
     Dosage: 2.5 MICROGRAM, BID
  4. VALPROATE [Suspect]
     Active Substance: VALPROIC ACID
     Indication: EPILEPSY
     Dosage: UNK
  5. LAMICTAL [Suspect]
     Active Substance: LAMOTRIGINE
     Indication: DYSKINESIA
     Dosage: 125 MILLIGRAM, BID
  6. LEPONEX [Suspect]
     Active Substance: CLOZAPINE
     Indication: PRODUCT USED FOR UNKNOWN INDICATION
     Dosage: 100 MILLIGRAM, QD
     Dates: end: 2017
  7. MINIRIN [Suspect]
     Active Substance: DESMOPRESSIN ACETATE
     Indication: DIABETES INSIPIDUS
     Dosage: UNK
     Dates: start: 198301
  8. TEMESTA                            /00273201/ [Suspect]
     Active Substance: LORAZEPAM
     Indication: ANXIETY DISORDER
     Dosage: 1.0 MILLIGRAM, AM

REACTIONS (12)
  - Memory impairment [Unknown]
  - Thirst decreased [Unknown]
  - Decreased appetite [Unknown]
  - Disturbance in attention [Unknown]
  - Fatigue [Unknown]
  - Epilepsy [Unknown]
  - Adverse event [Unknown]
  - Somnolence [Unknown]
  - Dyskinesia [Unknown]
  - Anxiety disorder [Unknown]
  - Micturition urgency [Unknown]
  - Sluggishness [Unknown]
